FAERS Safety Report 9236886 (Version 2)
Quarter: 2014Q4

REPORT INFORMATION
  Report Type: Spontaneous
  Country: FR (occurrence: None)
  Receive Date: 20130415
  Receipt Date: 20141223
  Transmission Date: 20150529
  Serious: Yes (Death, Life-Threatening, Hospitalization)
  Sender: FDA-Public Use
  Company Number: FR-2013-0973

PATIENT
  Age: 52 Year
  Sex: Female

DRUGS (4)
  1. CISPLATIN (CISPLATIN) [Suspect]
     Active Substance: CISPLATIN
     Indication: LUNG NEOPLASM MALIGNANT
     Route: 042
     Dates: start: 20130218, end: 20130218
  2. SOLU-MEDROL [Concomitant]
     Active Substance: METHYLPREDNISOLONE SODIUM SUCCINATE
  3. NAVELBINE [Suspect]
     Active Substance: VINORELBINE TARTRATE
     Indication: LUNG NEOPLASM MALIGNANT
     Route: 042
     Dates: start: 20130218, end: 20130218
  4. EMEND [Concomitant]
     Active Substance: APREPITANT

REACTIONS (2)
  - Myocardial infarction [None]
  - Ischaemic stroke [None]

NARRATIVE: CASE EVENT DATE: 20130221
